FAERS Safety Report 9613614 (Version 1)
Quarter: 2013Q4

REPORT INFORMATION
  Report Type: Spontaneous
  Country: FI (occurrence: None)
  Receive Date: 20131008
  Receipt Date: 20131008
  Transmission Date: 20140711
  Serious: Yes (Life-Threatening, Hospitalization)
  Sender: FDA-Public Use
  Company Number: FI-013167

PATIENT
  Age: 67 Year
  Sex: Male

DRUGS (4)
  1. FIRMAGON [Suspect]
     Indication: PROSTATE CANCER METASTATIC
     Dosage: (80 MG 1X/4 WEEKS SUBCUTANEOUS)
     Route: 058
     Dates: start: 201108, end: 201308
  2. NATURAL VITAMIN D [Concomitant]
  3. THYROXIN [Concomitant]
  4. XGEVA [Concomitant]

REACTIONS (7)
  - Oedema [None]
  - Pneumonia [None]
  - Respiratory failure [None]
  - Metastases to bone [None]
  - Acute respiratory distress syndrome [None]
  - Cardiac failure [None]
  - Hypertension [None]
